FAERS Safety Report 18501310 (Version 1)
Quarter: 2020Q4

REPORT INFORMATION
  Report Type: Report from Study
  Country: US (occurrence: US)
  Receive Date: 20201113
  Receipt Date: 20201113
  Transmission Date: 20210114
  Serious: Yes (Death)
  Sender: FDA-Public Use
  Company Number: US-ARIAD PHARMACEUTICALS, INC-2017US008709

PATIENT
  Age: 83 Year
  Sex: Male

DRUGS (1)
  1. PONATINIB [Suspect]
     Active Substance: PONATINIB
     Indication: CHRONIC MYELOID LEUKAEMIA
     Dosage: 15 MILLIGRAM, QD
     Route: 048
     Dates: start: 20160209

REACTIONS (4)
  - Balance disorder [Unknown]
  - Neuropathy peripheral [Unknown]
  - Death [Fatal]
  - Frustration tolerance decreased [Unknown]

NARRATIVE: CASE EVENT DATE: 20201110
